FAERS Safety Report 9255437 (Version 1)
Quarter: 2013Q2

REPORT INFORMATION
  Report Type: Spontaneous
  Country: DE (occurrence: None)
  Receive Date: 20130422
  Receipt Date: 20130422
  Transmission Date: 20140414
  Serious: Yes (Other)
  Sender: FDA-Public Use
  Company Number: GER/GER/13/0029026

PATIENT
  Sex: Female

DRUGS (1)
  1. CIPROBETA [Suspect]
     Indication: LOCALISED INFECTION
     Dosage: 250 MG, 3 IN 1 D
     Dates: start: 201303

REACTIONS (2)
  - Cataract [None]
  - Condition aggravated [None]
